FAERS Safety Report 5012773-8 (Version None)
Quarter: 2006Q2

REPORT INFORMATION
  Report Type: 
  Country: None (occurrence: None)
  Receive Date: 20060530
  Receipt Date: 20060221
  Transmission Date: 20061013
  Serious: Yes (Other)
  Sender: FDA-Public Use
  Company Number: US-BRISTOL-MYERS SQUIBB COMPANY-13292396

PATIENT
  Age: 42 Year
  Sex: Male

DRUGS (1)
  1. ERBITUX [Suspect]
     Indication: COLON CANCER
     Dates: start: 20060206, end: 20060206

REACTIONS (2)
  - DYSPNOEA [None]
  - HYPOTENSION [None]
